FAERS Safety Report 4422926-5 (Version None)
Quarter: 2004Q3

REPORT INFORMATION
  Report Type: 
  Country: None (occurrence: None)
  Receive Date: 20040811
  Receipt Date: 20040730
  Transmission Date: 20050211
  Serious: Yes (Life-Threatening)
  Sender: FDA-Public Use
  Company Number: JP-BRISTOL-MYERS SQUIBB COMPANY-12662417

PATIENT
  Age: 24 Year
  Sex: Male

DRUGS (6)
  1. GATIFLO TABS 100 MG [Suspect]
     Indication: LARYNGOPHARYNGITIS
     Route: 048
     Dates: start: 20040622, end: 20040624
  2. SOLANTAL [Concomitant]
     Route: 048
     Dates: start: 20040622, end: 20040624
  3. CALONAL [Concomitant]
     Route: 048
     Dates: start: 20040622, end: 20040624
  4. MALTOSE + LACTATED RINGERS SOLUTION [Concomitant]
     Route: 042
     Dates: start: 20040620, end: 20040624
  5. CHONDROITIN [Concomitant]
     Route: 042
     Dates: start: 20040620, end: 20040624
  6. ROCEPHIN [Concomitant]

REACTIONS (2)
  - PLATELET COUNT DECREASED [None]
  - WHITE BLOOD CELL COUNT DECREASED [None]
